FAERS Safety Report 7546406-3 (Version None)
Quarter: 2011Q2

REPORT INFORMATION
  Report Type: 
  Country: None (occurrence: None)
  Receive Date: 20110614
  Receipt Date: 20110610
  Transmission Date: 20111010
  Serious: Yes (Death)
  Sender: FDA-Public Use
  Company Number: PHHY2011CA15153

PATIENT
  Sex: Female

DRUGS (2)
  1. SENOKOT [Concomitant]
  2. CLOZAPINE [Suspect]
     Dosage: UNK
     Dates: start: 20030311

REACTIONS (1)
  - RESPIRATORY DISORDER [None]
